FAERS Safety Report 4777632-4 (Version None)
Quarter: 2005Q3

REPORT INFORMATION
  Report Type: 
  Country: None (occurrence: None)
  Receive Date: 20050921
  Receipt Date: 20050907
  Transmission Date: 20060218
  Serious: Yes (Hospitalization, Other)
  Sender: FDA-Public Use
  Company Number: USA0509107494

PATIENT
  Age: 78 Year
  Sex: Female

DRUGS (3)
  1. EVISTA [Suspect]
     Indication: OSTEOPOROSIS
  2. PREDNISONE [Concomitant]
  3. CALCIUM GLUCONATE [Concomitant]

REACTIONS (3)
  - PEMPHIGUS [None]
  - PHARYNGOLARYNGEAL PAIN [None]
  - UNEVALUABLE EVENT [None]
